FAERS Safety Report 6833376-6 (Version None)
Quarter: 2010Q3

REPORT INFORMATION
  Report Type: 
  Country: None (occurrence: None)
  Receive Date: 20100712
  Receipt Date: 20070319
  Transmission Date: 20110219
  Serious: No
  Sender: FDA-Public Use
  Company Number: US-PFIZER INC-2007023054

PATIENT
  Sex: Female
  Weight: 113.4 kg

DRUGS (3)
  1. CHANTIX [Suspect]
     Indication: SMOKING CESSATION THERAPY
     Route: 048
     Dates: start: 20070301, end: 20070308
  2. SYNTHROID [Concomitant]
     Indication: HYPOTHYROIDISM
  3. LISINOPRIL AND HYDROCHLOROTHIAZIDE [Concomitant]
     Indication: HYPERTENSION

REACTIONS (4)
  - DISTURBANCE IN ATTENTION [None]
  - MIDDLE INSOMNIA [None]
  - NIGHTMARE [None]
  - SOMNOLENCE [None]
